FAERS Safety Report 9501272 (Version 1)
Quarter: 2013Q3

REPORT INFORMATION
  Report Type: Spontaneous
  Country: DE (occurrence: UA)
  Receive Date: 20130905
  Receipt Date: 20130905
  Transmission Date: 20140515
  Serious: Yes (Death)
  Sender: FDA-Public Use
  Company Number: DE-ACTELION-A-US2013-88098

PATIENT
  Age: 7 Year
  Sex: Male

DRUGS (1)
  1. VENTAVIS BAYER SCHERING [Suspect]
     Indication: PULMONARY ARTERIAL HYPERTENSION
     Dosage: 2.5 MCG24HRS. QID
     Route: 039
     Dates: start: 20130803, end: 20130815

REACTIONS (2)
  - Pulmonary embolism [Fatal]
  - Off label use [Unknown]
